FAERS Safety Report 7418340-0 (Version None)
Quarter: 2011Q2

REPORT INFORMATION
  Report Type: 
  Country: None (occurrence: None)
  Receive Date: 20110415
  Receipt Date: 20110408
  Transmission Date: 20111010
  Serious: Yes (Death)
  Sender: FDA-Public Use
  Company Number: A0921941A

PATIENT
  Age: 56 Year
  Sex: Male

DRUGS (2)
  1. FLOLAN [Suspect]
     Dosage: 160MCG TWENTY FOUR TIMES PER DAY
     Route: 055
  2. NITROUS OXIDE [Concomitant]
     Route: 065

REACTIONS (5)
  - HYPOTENSION [None]
  - CONDITION AGGRAVATED [None]
  - OFF LABEL USE [None]
  - PULMONARY HYPERTENSION [None]
  - SEPTIC SHOCK [None]
